FAERS Safety Report 12527770 (Version 3)
Quarter: 2016Q3

REPORT INFORMATION
  Report Type: Report from Study
  Country: SE (occurrence: SE)
  Receive Date: 20160705
  Receipt Date: 20160809
  Transmission Date: 20161109
  Serious: Yes (Other)
  Sender: FDA-Public Use
  Company Number: SE-BAYER-2016-130177

PATIENT
  Age: 37 Year
  Sex: Female

DRUGS (1)
  1. MIRENA [Suspect]
     Active Substance: LEVONORGESTREL
     Dosage: 20 MCG/24HR, CONT
     Route: 015
     Dates: start: 20160602, end: 20160602

REACTIONS (3)
  - Pyrexia [Recovered/Resolved]
  - Complication of device insertion [None]
  - Pain [Recovered/Resolved]

NARRATIVE: CASE EVENT DATE: 20160602
